FAERS Safety Report 18822395 (Version 1)
Quarter: 2021Q1

REPORT INFORMATION
  Report Type: Report from Study
  Country: FR (occurrence: FR)
  Receive Date: 20210202
  Receipt Date: 20210202
  Transmission Date: 20210419
  Serious: Yes (Hospitalization)
  Sender: FDA-Public Use
  Company Number: FR-GUERBET-T201503322

PATIENT
  Age: 48 Year
  Sex: Female

DRUGS (1)
  1. OPTIJECT 350 [Suspect]
     Active Substance: IOVERSOL
     Indication: COMPUTERISED TOMOGRAM
     Dosage: 100 ML, SINGLE, INJECTION RATE OF 2.0 ML/SEC
     Route: 042
     Dates: start: 20150618, end: 20150618

REACTIONS (3)
  - Paraesthesia [Recovered/Resolved]
  - Visual impairment [Recovered/Resolved]
  - Type I hypersensitivity [Recovered/Resolved]

NARRATIVE: CASE EVENT DATE: 20150618
